FAERS Safety Report 7776476-9 (Version None)
Quarter: 2011Q3

REPORT INFORMATION
  Report Type: 
  Country: None (occurrence: None)
  Receive Date: 20110926
  Receipt Date: 20110913
  Transmission Date: 20111222
  Serious: Yes (Hospitalization)
  Sender: FDA-Public Use
  Company Number: US-ELI_LILLY_AND_COMPANY-US201104006290

PATIENT
  Age: 75 Year
  Sex: Female

DRUGS (14)
  1. FORTEO [Suspect]
     Dosage: 20 UG, QD
     Route: 065
     Dates: end: 20110801
  2. GLUCOSAMINE [Concomitant]
  3. MULTI-VITAMIN [Concomitant]
  4. NEXIUM [Concomitant]
  5. VITAMIN D [Concomitant]
  6. FORTEO [Suspect]
     Indication: OSTEOPOROSIS
     Dosage: 20 UG, QD
     Dates: start: 20101101
  7. DILTIAZEM [Concomitant]
  8. CALCIUM CARBONATE [Concomitant]
  9. FLUTICASONE PROPIONATE [Concomitant]
  10. PRAVASTATIN [Concomitant]
  11. ASCORBIC ACID [Concomitant]
  12. VITAMIN E                            /001105/ [Concomitant]
  13. FOSINOPRIL SODIUM [Concomitant]
  14. PHENAZOPYRIDINE HCL TAB [Concomitant]

REACTIONS (5)
  - PAIN [None]
  - PAIN IN EXTREMITY [None]
  - INJECTION SITE PAIN [None]
  - ARTHRALGIA [None]
  - NEPHROLITHIASIS [None]
